FAERS Safety Report 8397590-3 (Version None)
Quarter: 2012Q2

REPORT INFORMATION
  Report Type: 
  Country: None (occurrence: None)
  Receive Date: 20120524
  Receipt Date: 20120508
  Transmission Date: 20120825
  Serious: Yes (Hospitalization)
  Sender: FDA-Public Use
  Company Number: ACET20120006

PATIENT
  Age: 44 Year
  Sex: Female

DRUGS (12)
  1. INSULIN GLARGINE (INSULIN GLARGINE) (INSULIN GLARGINE) [Concomitant]
  2. OXYCODONE HCL [Concomitant]
  3. METOPROLOL TARTRATE [Concomitant]
  4. ACETAMINOPHEN [Suspect]
     Indication: NEURALGIA
     Dosage: 650 MG, 4 X DAILY AS NEEDED
  5. MULTIVITAMIN [Concomitant]
  6. SIMVASTATIN [Suspect]
     Indication: PRODUCT USED FOR UNKNOWN INDICATION
     Dosage: 20 MG, ORAL
     Route: 048
  7. AMLODIPINE [Concomitant]
  8. GABAPENTIN [Concomitant]
  9. LIDOCAINE EXTERNAL PATCH (LIDOCAINE) (LIDOCAINE) [Concomitant]
  10. DULOXETINE HYDROCHLORIDE [Suspect]
     Indication: DEPRESSION
     Dosage: 60 MG, 1 IN 1 D
  11. WARFARIN SODIUM [Suspect]
     Indication: PRODUCT USED FOR UNKNOWN INDICATION
     Dosage: 1-6 MG, DAILY
  12. INSULIN LISPRO (INSULIN LISPRO) (INSULIN LISPRO) [Concomitant]

REACTIONS (4)
  - DRUG INTERACTION [None]
  - INTERNATIONAL NORMALISED RATIO INCREASED [None]
  - ASPARTATE AMINOTRANSFERASE INCREASED [None]
  - ALANINE AMINOTRANSFERASE INCREASED [None]
